FAERS Safety Report 11746629 (Version 1)
Quarter: 2015Q4

REPORT INFORMATION
  Report Type: Spontaneous
  Country: NL (occurrence: NL)
  Receive Date: 20151117
  Receipt Date: 20151117
  Transmission Date: 20160304
  Serious: Yes (Life-Threatening, Other)
  Sender: FDA-Public Use
  Company Number: NL-ASTELLAS-2015US037496

PATIENT
  Age: 74 Year
  Sex: Male

DRUGS (2)
  1. CALCIUM [Concomitant]
     Active Substance: CALCIUM
     Indication: PRODUCT USED FOR UNKNOWN INDICATION
     Dosage: UNK UNK, UNKNOWN FREQ.
     Route: 065
  2. XTANDI [Suspect]
     Active Substance: ENZALUTAMIDE
     Indication: PROSTATE CANCER
     Route: 048
     Dates: end: 20151102

REACTIONS (3)
  - Lung neoplasm malignant [Unknown]
  - Malignant neoplasm progression [Unknown]
  - General physical health deterioration [Unknown]
